FAERS Safety Report 8044504-1 (Version None)
Quarter: 2012Q1

REPORT INFORMATION
  Report Type: 
  Country: None (occurrence: None)
  Receive Date: 20120113
  Receipt Date: 20120106
  Transmission Date: 20120608
  Serious: Yes (Other)
  Sender: FDA-Public Use
  Company Number: US-JNJFOC-20120103311

PATIENT
  Age: 75 Year
  Sex: Female
  Weight: 80.74 kg

DRUGS (4)
  1. IMODIUM A-D [Suspect]
     Indication: DIARRHOEA
     Dosage: 4 CAPLETS TWICE
     Route: 048
     Dates: start: 20110608
  2. UNKNOWN MEDICATION [Concomitant]
     Route: 065
  3. IMODIUM A-D [Suspect]
     Route: 048
  4. METHOTREXATE [Concomitant]
     Indication: MUSCULOSKELETAL PAIN
     Route: 065

REACTIONS (3)
  - DRUG INEFFECTIVE [None]
  - WEIGHT DECREASED [None]
  - OVERDOSE [None]
